FAERS Safety Report 25470212 (Version 6)
Quarter: 2025Q3

REPORT INFORMATION
  Report Type: Report from Study
  Country: US (occurrence: US)
  Receive Date: 20250623
  Receipt Date: 20250924
  Transmission Date: 20251020
  Serious: Yes (Other)
  Sender: ABBVIE
  Company Number: US-ABBVIE-6336594

PATIENT
  Age: 44 Year
  Sex: Female

DRUGS (4)
  1. SKYRIZI [Suspect]
     Active Substance: RISANKIZUMAB-RZAA
     Indication: Psoriasis
     Route: 058
     Dates: start: 2024
  2. SKYRIZI [Suspect]
     Active Substance: RISANKIZUMAB-RZAA
     Dosage: FORM STRENGTH 150 MILLIGRAMS
     Route: 058
     Dates: start: 2023
  3. SKYRIZI [Suspect]
     Active Substance: RISANKIZUMAB-RZAA
     Route: 058
     Dates: start: 20250219, end: 20250219
  4. EPINEPHRINE\LIDOCAINE [Concomitant]
     Active Substance: EPINEPHRINE\LIDOCAINE
     Indication: Product used for unknown indication

REACTIONS (16)
  - Squamous cell carcinoma of skin [Not Recovered/Not Resolved]
  - Mental disorder [Unknown]
  - Squamous cell carcinoma of skin [Unknown]
  - Rash [Unknown]
  - Injury associated with device [Unknown]
  - Device issue [Unknown]
  - Therapeutic product effect decreased [Unknown]
  - Keratoacanthoma [Unknown]
  - Photodermatosis [Unknown]
  - Neoplasm skin [Unknown]
  - Seborrhoeic keratosis [Unknown]
  - Pain of skin [Unknown]
  - Actinic keratosis [Unknown]
  - Wound complication [Unknown]
  - Pain [Unknown]
  - Injection site reaction [Unknown]

NARRATIVE: CASE EVENT DATE: 20240101
